FAERS Safety Report 6656184-8 (Version None)
Quarter: 2010Q1

REPORT INFORMATION
  Report Type: 
  Country: None (occurrence: None)
  Receive Date: 20100326
  Receipt Date: 20100326
  Transmission Date: 20100710
  Serious: Yes (Other)
  Sender: FDA-Public Use
  Company Number: None

PATIENT
  Sex: Female
  Weight: 97.5234 kg

DRUGS (1)
  1. AVELOX [Suspect]
     Indication: SINUSITIS
     Dosage: 1 TABLET DAILY PO
     Route: 048
     Dates: start: 20100321, end: 20100325

REACTIONS (8)
  - CONFUSIONAL STATE [None]
  - DEHYDRATION [None]
  - DYSPNOEA [None]
  - HAEMATOCHEZIA [None]
  - INITIAL INSOMNIA [None]
  - MIDDLE INSOMNIA [None]
  - PSEUDOMEMBRANOUS COLITIS [None]
  - RESTLESSNESS [None]
